FAERS Safety Report 9042863 (Version 1)
Quarter: 2013Q1

REPORT INFORMATION
  Report Type: Report from Study
  Country: US (occurrence: US)
  Receive Date: 20130129
  Receipt Date: 20130129
  Transmission Date: 20140127
  Serious: No
  Sender: FDA-Public Use
  Company Number: US-ABBOTT-12P-163-0913806-00

PATIENT
  Sex: Female

DRUGS (3)
  1. HUMIRA 40 MG/0.8 ML PEN [Suspect]
     Indication: CROHN^S DISEASE
     Dosage: (4 PENS) FIRST DOSE
     Route: 058
     Dates: start: 201202
  2. HUMIRA 40 MG/0.8 ML PEN [Suspect]
     Dosage: (2 PENS)
  3. HUMIRA 40 MG/0.8 ML PEN [Suspect]

REACTIONS (5)
  - Dizziness [Unknown]
  - Dizziness [Unknown]
  - Visual impairment [Unknown]
  - Asthenopia [Unknown]
  - Vision blurred [Unknown]
